FAERS Safety Report 5573642-8 (Version None)
Quarter: 2007Q4

REPORT INFORMATION
  Report Type: 
  Country: None (occurrence: None)
  Receive Date: 20071226
  Receipt Date: 20071212
  Transmission Date: 20080405
  Serious: Yes (Other)
  Sender: FDA-Public Use
  Company Number: PL-AMGEN-US255719

PATIENT
  Age: 58 Year
  Sex: Female
  Weight: 72 kg

DRUGS (3)
  1. ENBREL [Suspect]
     Indication: RHEUMATOID ARTHRITIS
     Route: 058
     Dates: start: 20071115
  2. METHOTREXATE [Concomitant]
     Indication: RHEUMATOID ARTHRITIS
  3. METYPRED [Concomitant]
     Indication: RHEUMATOID ARTHRITIS

REACTIONS (4)
  - HYPERSENSITIVITY [None]
  - INJECTION SITE REACTION [None]
  - LARYNGEAL OEDEMA [None]
  - NONSPECIFIC REACTION [None]
